FAERS Safety Report 8765498 (Version 2)
Quarter: 2012Q4

REPORT INFORMATION
  Report Type: 
  Country: TR (occurrence: TR)
  Receive Date: 20120903
  Receipt Date: 20121002
  Transmission Date: 20130627
  Serious: Yes (Death)
  Sender: FDA-Public Use
  Company Number: PHHY2012TR075504

PATIENT
  Age: 83 Year
  Sex: Male

DRUGS (2)
  1. EXELON [Suspect]
     Indication: DEMENTIA ALZHEIMER^S TYPE
     Dosage: 5 mg patch
     Route: 062
     Dates: start: 20120522
  2. ALDACTAZIDE [Concomitant]
     Indication: HYPERTENSION
     Dosage: 50 mg, UNK

REACTIONS (3)
  - Cardiac failure [Fatal]
  - Pneumonia [Fatal]
  - Dyspnoea [Fatal]
